FAERS Safety Report 23532300 (Version 1)
Quarter: 2024Q1

REPORT INFORMATION
  Report Type: Spontaneous
  Country: FR (occurrence: FR)
  Receive Date: 20240216
  Receipt Date: 20240216
  Transmission Date: 20240410
  Serious: Yes (Life-Threatening, Hospitalization)
  Sender: FDA-Public Use
  Company Number: FR-SUN PHARMACEUTICAL INDUSTRIES LTD-2024RR-431680

PATIENT
  Age: 99 Year
  Sex: Female

DRUGS (4)
  1. QUETIAPINE [Suspect]
     Active Substance: QUETIAPINE
     Indication: Wrong patient received product
     Dosage: UNK
     Route: 048
     Dates: start: 20231015, end: 20231015
  2. VALIUM [Suspect]
     Active Substance: DIAZEPAM
     Indication: Wrong patient received product
     Dosage: 10 MILLIGRAM, IN TOTAL
     Route: 048
     Dates: start: 20231015, end: 20231015
  3. TRAMADOL [Suspect]
     Active Substance: TRAMADOL\TRAMADOL HYDROCHLORIDE
     Indication: Wrong patient received product
     Dosage: 50 MILLIGRAM, IN TOTAL
     Route: 048
     Dates: start: 20231015, end: 20231015
  4. MIRTAZAPINE [Suspect]
     Active Substance: MIRTAZAPINE
     Indication: Wrong patient received product
     Dosage: 15 MILLIGRAM, IN TOTAL
     Route: 048
     Dates: start: 20231015, end: 20231015

REACTIONS (2)
  - Altered state of consciousness [Recovered/Resolved]
  - Product administration error [Recovered/Resolved]

NARRATIVE: CASE EVENT DATE: 20231015
